FAERS Safety Report 5792059-4 (Version None)
Quarter: 2008Q2

REPORT INFORMATION
  Report Type: 
  Country: None (occurrence: None)
  Receive Date: 20080625
  Receipt Date: 20080415
  Transmission Date: 20081010
  Serious: No
  Sender: FDA-Public Use
  Company Number: US-WYE-H03636308

PATIENT
  Sex: Male

DRUGS (1)
  1. TORISEL [Suspect]
     Indication: RENAL CELL CARCINOMA

REACTIONS (5)
  - CHILLS [None]
  - EXFOLIATIVE RASH [None]
  - PRURITUS [None]
  - RASH [None]
  - RASH ERYTHEMATOUS [None]
